FAERS Safety Report 6780471-6 (Version None)
Quarter: 2010Q2

REPORT INFORMATION
  Report Type: 
  Country: None (occurrence: None)
  Receive Date: 20100621
  Receipt Date: 20100610
  Transmission Date: 20101027
  Serious: Yes (Hospitalization)
  Sender: FDA-Public Use
  Company Number: BR-BIOGENIDEC-2010BI020148

PATIENT
  Age: 43 Year
  Sex: Female

DRUGS (2)
  1. AVONEX [Suspect]
     Indication: MULTIPLE SCLEROSIS
     Route: 030
     Dates: start: 20080826
  2. TORVAL [Concomitant]

REACTIONS (12)
  - ARRHYTHMIA [None]
  - CARDIAC DISORDER [None]
  - EYE IRRITATION [None]
  - INJECTION SITE HAEMORRHAGE [None]
  - LOSS OF CONTROL OF LEGS [None]
  - MUSCLE SPASMS [None]
  - NEPHROPATHY [None]
  - NERVOUSNESS [None]
  - NEURALGIA [None]
  - OEDEMA PERIPHERAL [None]
  - PAIN IN EXTREMITY [None]
  - PYREXIA [None]
